FAERS Safety Report 4686932-8 (Version None)
Quarter: 2005Q2

REPORT INFORMATION
  Report Type: 
  Country: None (occurrence: None)
  Receive Date: 20050606
  Receipt Date: 20050523
  Transmission Date: 20051028
  Serious: Yes (Hospitalization)
  Sender: FDA-Public Use
  Company Number: FR_050306133

PATIENT
  Age: 39 Year
  Sex: Female

DRUGS (6)
  1. ZYPREXA [Suspect]
     Indication: PSYCHOTIC DISORDER
     Dosage: 20 MG/1 DAY
     Dates: start: 20040727, end: 20041220
  2. TERCIAN (CYAMEMAZINE) [Concomitant]
  3. ZOLOFT [Concomitant]
  4. XANAX [Concomitant]
  5. TRANXENE [Concomitant]
  6. IMOVANE (ZOPLICONE) [Concomitant]

REACTIONS (2)
  - CYTOLYTIC HEPATITIS [None]
  - SELF MUTILATION [None]
